FAERS Safety Report 7617010-3 (Version None)
Quarter: 2011Q3

REPORT INFORMATION
  Report Type: 
  Country: None (occurrence: None)
  Receive Date: 20110718
  Receipt Date: 20110711
  Transmission Date: 20111222
  Serious: Yes (Other)
  Sender: FDA-Public Use
  Company Number: FR-BRISTOL-MYERS SQUIBB COMPANY-15896384

PATIENT
  Age: 66 Year
  Sex: Female

DRUGS (12)
  1. AMARYL [Concomitant]
  2. GLUCOPHAGE [Concomitant]
  3. CRESTOR [Concomitant]
  4. IPERTEN [Concomitant]
  5. POLARAMINE [Concomitant]
     Indication: PREMEDICATION
     Dates: start: 20110601
  6. SOLU-MEDROL [Concomitant]
     Indication: PREMEDICATION
     Dates: start: 20110601
  7. ZOLPIDEM [Concomitant]
  8. RANITIDINE [Concomitant]
     Indication: PREMEDICATION
     Dates: start: 20110601
  9. TAXOL [Suspect]
     Indication: BREAST CANCER
     Dosage: 09JUN11,16JUN11 SECOND AND THIRD COURSE OF TAXOL WITH THE DOSE DECREASED TO 114MG
     Route: 042
     Dates: start: 20110601
  10. HERCEPTIN [Suspect]
     Dosage: 315 MG ON 01-JUN-2011
  11. ONDANSETRON [Concomitant]
     Indication: PREMEDICATION
     Dates: start: 20110601
  12. KERLONE [Concomitant]

REACTIONS (1)
  - PALMAR-PLANTAR ERYTHRODYSAESTHESIA SYNDROME [None]
